FAERS Safety Report 4803604-7 (Version None)
Quarter: 2005Q4

REPORT INFORMATION
  Report Type: 
  Country: None (occurrence: None)
  Receive Date: 20051019
  Receipt Date: 20050930
  Transmission Date: 20060501
  Serious: Yes (Life-Threatening)
  Sender: FDA-Public Use
  Company Number: 200512813JP

PATIENT
  Age: 81 Year
  Sex: Female
  Weight: 49.9 kg

DRUGS (3)
  1. AMARYL [Suspect]
     Indication: DIABETES MELLITUS
     Dosage: DOSE: 1 TABLET
     Route: 048
     Dates: start: 20041105, end: 20050925
  2. BASEN [Concomitant]
     Indication: DIABETES MELLITUS
     Dosage: DOSE: 3 TABLETS
     Route: 048
     Dates: start: 20050107, end: 20050924
  3. SERENACE [Concomitant]
     Dosage: DOSE: 4 TABLETS
     Route: 048
     Dates: start: 20050822

REACTIONS (1)
  - HYPOGLYCAEMIA [None]
